FAERS Safety Report 6230700-2 (Version None)
Quarter: 2009Q2

REPORT INFORMATION
  Report Type: 
  Country: None (occurrence: None)
  Receive Date: 20090616
  Receipt Date: 20090611
  Transmission Date: 20091009
  Serious: Yes (Other)
  Sender: FDA-Public Use
  Company Number: US-BRISTOL-MYERS SQUIBB COMPANY-14662035

PATIENT
  Age: 60 Year
  Sex: Female
  Weight: 54 kg

DRUGS (5)
  1. ERBITUX [Suspect]
     Indication: OESOPHAGEAL SQUAMOUS CELL CARCINOMA
     Dosage: DELAYED BY 10 DAYS.DATE OF FIRST COURSE:07APR09;15MAY09 REMOVED FROM PROTOCOL
     Dates: start: 20090505, end: 20090505
  2. CISPLATIN [Suspect]
     Indication: OESOPHAGEAL SQUAMOUS CELL CARCINOMA
     Dosage: DELAYED BY 10 DAYS.DATE OF FIRST COURSE:07APR09;15MAY09 REMOVED FROM PROTOCOL
     Dates: start: 20090505, end: 20090505
  3. TAXOL [Suspect]
     Indication: OESOPHAGEAL SQUAMOUS CELL CARCINOMA
     Dosage: DELAYED BY 10 DAYS.DATE OF FIRST COURSE:07APR09;15MAY09 REMOVED FROM PROTOCOL
     Dates: start: 20090505, end: 20090505
  4. RADIATION THERAPY [Suspect]
     Indication: OESOPHAGEAL SQUAMOUS CELL CARCINOMA
     Dosage: 1 DF=54.32 GY NO OF FRACTIONS:28 IN 38 DAYS:LAST ADMN DATE: 15MAY09,REMOVED FROM PROTOCOL
     Dates: start: 20090407
  5. VITAMINS [Concomitant]

REACTIONS (3)
  - HYPOCALCAEMIA [None]
  - HYPOMAGNESAEMIA [None]
  - LYMPHOPENIA [None]
